FAERS Safety Report 4684700-4 (Version None)
Quarter: 2005Q2

REPORT INFORMATION
  Report Type: 
  Country: None (occurrence: None)
  Receive Date: 20050603
  Receipt Date: 20050518
  Transmission Date: 20051028
  Serious: Yes (Hospitalization)
  Sender: FDA-Public Use
  Company Number: US015030

PATIENT
  Age: 30 Year
  Sex: Female
  Weight: 53.5244 kg

DRUGS (7)
  1. GABITRIL [Suspect]
     Indication: ANXIETY
     Dosage: 32 MG ONCE ORAL
     Route: 048
     Dates: start: 20050331, end: 20050331
  2. GABITRIL [Suspect]
     Indication: DEPRESSION
     Dosage: 32 MG ONCE ORAL
     Route: 048
     Dates: start: 20050331, end: 20050331
  3. KLONOPIN [Concomitant]
  4. LEXAPRO [Concomitant]
  5. VICODIN [Concomitant]
  6. ADVAIR [Concomitant]
  7. ALBUTEROL [Concomitant]

REACTIONS (6)
  - CHEST DISCOMFORT [None]
  - GASTROOESOPHAGEAL REFLUX DISEASE [None]
  - INTENTIONAL MISUSE [None]
  - OVERDOSE [None]
  - PSYCHOTIC DISORDER [None]
  - TONIC CONVULSION [None]
